FAERS Safety Report 25248037 (Version 5)
Quarter: 2025Q3

REPORT INFORMATION
  Report Type: Report from Study
  Country: CN (occurrence: CN)
  Receive Date: 20250429
  Receipt Date: 20250822
  Transmission Date: 20251021
  Serious: Yes (Hospitalization, Other)
  Sender: RANBAXY
  Company Number: CN-SUN PHARMACEUTICAL INDUSTRIES LTD-2025R1-505529

PATIENT
  Age: 57 Year
  Sex: Male
  Weight: 61 kg

DRUGS (20)
  1. SONIDEGIB [Suspect]
     Active Substance: SONIDEGIB
     Indication: Basal cell carcinoma
     Dosage: 200 MILLIGRAM, QD
     Route: 048
     Dates: start: 20240720, end: 20250412
  2. SONIDEGIB [Suspect]
     Active Substance: SONIDEGIB
     Dosage: 200 MILLIGRAM, QD
     Route: 048
     Dates: start: 20240720, end: 20250624
  3. ACARBOSE [Concomitant]
     Active Substance: ACARBOSE
     Indication: Type 2 diabetes mellitus
     Dosage: 50 MILLIGRAM, TID
     Route: 048
     Dates: start: 2024
  4. DIAMORPHINE [Concomitant]
     Active Substance: DIAMORPHINE
     Indication: Diabetic neuropathy
     Dosage: 0.5 MILLIGRAM, TID
     Route: 048
  5. DIAMORPHINE [Concomitant]
     Active Substance: DIAMORPHINE
     Indication: Diabetic vascular disorder
  6. EPALRESTAT [Concomitant]
     Active Substance: EPALRESTAT
     Indication: Diabetic vascular disorder
     Dosage: 50 MILLIGRAM, TID
     Route: 048
     Dates: start: 2024
  7. EPALRESTAT [Concomitant]
     Active Substance: EPALRESTAT
     Indication: Diabetic neuropathy
  8. INSULIN DEGLUDEC\LIRAGLUTIDE [Concomitant]
     Active Substance: INSULIN DEGLUDEC\LIRAGLUTIDE
     Indication: Type 2 diabetes mellitus
     Dosage: 16 INTERNATIONAL UNIT, QD
     Route: 058
     Dates: start: 2024
  9. METHYLCOBALAMIN [Concomitant]
     Active Substance: METHYLCOBALAMIN
     Indication: Diabetic vascular disorder
     Dosage: 0.5 MILLIGRAM, TID
     Route: 048
     Dates: start: 20250304
  10. METHYLCOBALAMIN [Concomitant]
     Active Substance: METHYLCOBALAMIN
     Indication: Diabetic neuropathy
  11. METOPROLOL SUCCINATE [Concomitant]
     Active Substance: METOPROLOL SUCCINATE
     Indication: Arteriosclerosis coronary artery
     Dosage: 47.5 MILLIGRAM, QD
     Route: 048
     Dates: start: 2024
  12. PERINDOPRIL ERBUMINE [Concomitant]
     Active Substance: PERINDOPRIL ERBUMINE
     Indication: Arteriosclerosis coronary artery
     Dosage: 4 MILLIGRAM, QD
     Route: 048
     Dates: start: 2024
  13. PRAVASTATIN [Concomitant]
     Active Substance: PRAVASTATIN
     Indication: Arteriosclerosis coronary artery
     Dosage: 10 MILLIGRAM, QD
     Route: 048
     Dates: start: 20240702, end: 20250414
  14. PRAVASTATIN [Concomitant]
     Active Substance: PRAVASTATIN
     Dosage: 20 MILLIGRAM, QD
     Route: 048
     Dates: start: 20250415, end: 2025
  15. PRAVASTATIN [Concomitant]
     Active Substance: PRAVASTATIN
     Dosage: 10 MILLIGRAM, QD
     Route: 048
     Dates: start: 2025
  16. REPAGLINIDE [Concomitant]
     Active Substance: REPAGLINIDE
     Indication: Type 2 diabetes mellitus
     Dosage: 1 MILLIGRAM, TID
     Route: 048
     Dates: start: 2024
  17. ROSUVASTATIN [Concomitant]
     Active Substance: ROSUVASTATIN
     Indication: Arteriosclerosis coronary artery
     Dosage: 10 MILLIGRAM, QD
     Route: 048
     Dates: start: 2024, end: 20240701
  18. TENOFOVIR AMIBUFENAMIDE [Concomitant]
     Active Substance: TENOFOVIR AMIBUFENAMIDE
     Indication: Chronic hepatitis B
     Dosage: UNK UNK, QD (1 TABLET)
     Route: 048
     Dates: start: 2017
  19. TENOFOVIR AMIBUFENAMIDE [Concomitant]
     Active Substance: TENOFOVIR AMIBUFENAMIDE
     Indication: Arteriosclerosis coronary artery
     Dosage: 100 MILLIGRAM, QD
     Route: 048
     Dates: start: 2024
  20. TENOFOVIR AMIBUFENAMIDE [Concomitant]
     Active Substance: TENOFOVIR AMIBUFENAMIDE
     Dosage: 75 MILLIGRAM, QD
     Route: 048
     Dates: start: 2024

REACTIONS (9)
  - Ureterolithiasis [Recovered/Resolved]
  - Percutaneous coronary intervention [Recovering/Resolving]
  - Coronary artery stenosis [Recovering/Resolving]
  - Urinary tract infection [Not Recovered/Not Resolved]
  - Muscle twitching [Recovering/Resolving]
  - Dizziness [Recovered/Resolved]
  - Headache [Recovered/Resolved]
  - Hypoproteinaemia [Recovered/Resolved]
  - Hepatic function abnormal [Not Recovered/Not Resolved]

NARRATIVE: CASE EVENT DATE: 20250101
